FAERS Safety Report 21674716 (Version 1)
Quarter: 2022Q4

REPORT INFORMATION
  Report Type: Spontaneous
  Country: US (occurrence: US)
  Receive Date: 20221202
  Receipt Date: 20221202
  Transmission Date: 20230112
  Serious: No
  Sender: FDA-Public Use
  Company Number: US-SA-SAC20221201000987

PATIENT
  Sex: Female

DRUGS (1)
  1. KEVZARA [Suspect]
     Active Substance: SARILUMAB
     Indication: Osteoporosis
     Dosage: 150 MG, QOW
     Route: 058

REACTIONS (6)
  - Migraine [Unknown]
  - Injection site reaction [Unknown]
  - Contusion [Unknown]
  - Condition aggravated [Unknown]
  - Burning sensation [Unknown]
  - Product use in unapproved indication [Unknown]
